FAERS Safety Report 4515185-6 (Version None)
Quarter: 2004Q4

REPORT INFORMATION
  Report Type: 
  Country: None (occurrence: None)
  Receive Date: 20041201
  Receipt Date: 20041118
  Transmission Date: 20050328
  Serious: Yes (Other)
  Sender: FDA-Public Use
  Company Number: US-GLAXOSMITHKLINE-A0535071A

PATIENT
  Sex: Male
  Weight: 0.5 kg

DRUGS (2)
  1. COMBIVIR [Suspect]
     Indication: HIV INFECTION
     Dosage: 1TAB TWICE PER DAY
     Dates: start: 20040830, end: 20041024
  2. VIRACEPT [Concomitant]
     Indication: HIV INFECTION
     Dosage: 625MG TWICE PER DAY
     Dates: start: 20040830, end: 20041024

REACTIONS (4)
  - DEATH NEONATAL [None]
  - DRUG EXPOSURE DURING PREGNANCY [None]
  - FAILURE TO THRIVE [None]
  - PREMATURE BABY [None]
